FAERS Safety Report 8545047-9 (Version None)
Quarter: 2012Q3

REPORT INFORMATION
  Report Type: 
  Country: None (occurrence: None)
  Receive Date: 20120727
  Receipt Date: 20120112
  Transmission Date: 20120928
  Serious: Yes (Death)
  Sender: FDA-Public Use
  Company Number: US-ROCHE-1092212

PATIENT
  Sex: Female

DRUGS (5)
  1. GENTAMICIN [Concomitant]
  2. FLURACIL [Concomitant]
  3. CYTOXAN [Concomitant]
  4. HERCEPTIN [Suspect]
     Indication: BREAST CANCER FEMALE
  5. METHOTREXATE [Concomitant]

REACTIONS (1)
  - DEATH [None]
